FAERS Safety Report 10142771 (Version 1)
Quarter: 2014Q2

REPORT INFORMATION
  Report Type: Spontaneous
  Country: QA (occurrence: None)
  Receive Date: 20140428
  Receipt Date: 20140428
  Transmission Date: 20141212
  Serious: Yes (Other)
  Sender: FDA-Public Use
  Company Number: VAL_03080_2014

PATIENT
  Age: 75 Year
  Sex: Female

DRUGS (9)
  1. METOPROLOL [Suspect]
     Indication: BLOOD PRESSURE INCREASED
  2. HYDRALAZINE [Suspect]
     Indication: CONVULSION
  3. HYDRALAZINE [Suspect]
     Indication: BLOOD PRESSURE INCREASED
  4. NIFEDIPINE [Suspect]
     Indication: BLOOD PRESSURE INCREASED
     Route: 048
  5. PERINDOPRIL [Suspect]
     Indication: BLOOD PRESSURE INCREASED
  6. POTASSIUM CHLORIDE [Concomitant]
  7. AMLODIPINE [Concomitant]
  8. VALPROIC ACID [Concomitant]
  9. ISOSORBIDE DINITRATE [Concomitant]

REACTIONS (16)
  - Skin reaction [None]
  - Toxic epidermal necrolysis [None]
  - Asthenia [None]
  - Nausea [None]
  - Depressed level of consciousness [None]
  - Respiratory failure [None]
  - Hypercapnia [None]
  - Rash erythematous [None]
  - Rash maculo-papular [None]
  - Dermatitis bullous [None]
  - Generalised oedema [None]
  - Oedema peripheral [None]
  - Antinuclear antibody positive [None]
  - Skin lesion [None]
  - Condition aggravated [None]
  - Convulsion [None]
